FAERS Safety Report 18086538 (Version 1)
Quarter: 2020Q3

REPORT INFORMATION
  Report Type: Spontaneous
  Country: US (occurrence: US)
  Receive Date: 20200728
  Receipt Date: 20200728
  Transmission Date: 20201103
  Serious: No
  Sender: FDA-Public Use
  Company Number: None

PATIENT
  Age: 78 Year
  Sex: Male
  Weight: 78 kg

DRUGS (2)
  1. PIPERACILLIN/TAZOBACTAM (PIPERACILLIN NA 2GM/TAZOBACTAM 0.25ML INJ, BA [Suspect]
     Active Substance: PIPERACILLIN SODIUM\TAZOBACTAM SODIUM
     Indication: GRAFT INFECTION
     Dosage: ?          OTHER ROUTE:IV?
     Dates: start: 20200612, end: 20200612
  2. SULFAMETHOXAZOLE AND TRIMETHOPRIM [Suspect]
     Active Substance: SULFAMETHOXAZOLE\TRIMETHOPRIM
     Indication: GRAFT INFECTION
     Dosage: ?          OTHER ROUTE:IV?
     Dates: start: 20200612, end: 20200612

REACTIONS (4)
  - Dysphagia [None]
  - Dyspnoea [None]
  - Angioedema [None]
  - Rash pruritic [None]

NARRATIVE: CASE EVENT DATE: 20200612
